FAERS Safety Report 6643297-X (Version None)
Quarter: 2010Q1

REPORT INFORMATION
  Report Type: 
  Country: None (occurrence: None)
  Receive Date: 20100319
  Receipt Date: 20100311
  Transmission Date: 20100710
  Serious: Yes (Hospitalization, Disabling)
  Sender: FDA-Public Use
  Company Number: GXKR2010US02964

PATIENT
  Age: 38 Year
  Sex: Female

DRUGS (4)
  1. MINOCYCLINE HCL [Suspect]
     Indication: ACNE
     Route: 065
  2. MONTELUKAST SODIUM [Concomitant]
  3. QUINAPRIL [Concomitant]
  4. HYDROCHLOROTHIAZIDE [Concomitant]

REACTIONS (16)
  - CARDIAC FAILURE CONGESTIVE [None]
  - DRUG RASH WITH EOSINOPHILIA AND SYSTEMIC SYMPTOMS [None]
  - DYSPNOEA [None]
  - HAEMATURIA [None]
  - LYMPHADENOPATHY [None]
  - MYOCARDITIS [None]
  - PERIORBITAL OEDEMA [None]
  - PETECHIAE [None]
  - PLASMAPHERESIS [None]
  - PYREXIA [None]
  - RASH ERYTHEMATOUS [None]
  - RENAL FAILURE ACUTE [None]
  - SKIN EXFOLIATION [None]
  - SKIN FISSURES [None]
  - THYROIDITIS [None]
  - TRANSAMINASES INCREASED [None]
